FAERS Safety Report 23673778 (Version 3)
Quarter: 2024Q4

REPORT INFORMATION
  Report Type: Report from Study
  Country: CA (occurrence: CA)
  Receive Date: 20240326
  Receipt Date: 20241029
  Transmission Date: 20250115
  Serious: Yes (Other)
  Sender: SANDOZ
  Company Number: CA-SANDOZ-SDZ2024CA029436

PATIENT
  Sex: Male

DRUGS (1)
  1. HYRIMOZ [Suspect]
     Active Substance: ADALIMUMAB-ADAZ
     Indication: Crohn^s disease
     Dosage: 80MG/40MG EVERY WEEK, QW (ALTERNATE 80 MG AND 40 MG)
     Route: 058
     Dates: start: 20220608

REACTIONS (8)
  - Surgery [Unknown]
  - General physical health deterioration [Unknown]
  - Faeces soft [Unknown]
  - Anal fissure [Not Recovered/Not Resolved]
  - Abscess [Not Recovered/Not Resolved]
  - Injection site reaction [Unknown]
  - Abdominal pain [Unknown]
  - Off label use [Unknown]
